FAERS Safety Report 24715556 (Version 3)
Quarter: 2025Q1

REPORT INFORMATION
  Report Type: Report from Study
  Country: US (occurrence: US)
  Receive Date: 20241210
  Receipt Date: 20250103
  Transmission Date: 20250408
  Serious: Yes (Hospitalization, Other)
  Sender: DECIPHERA PHARMACEUTICALS
  Company Number: US-DECIPHERA PHARMACEUTICALS LLC-2024US000996

PATIENT
  Age: 77 Year
  Sex: Male
  Weight: 96.6 kg

DRUGS (1)
  1. QINLOCK [Suspect]
     Active Substance: RIPRETINIB
     Indication: Gastrointestinal stromal tumour
     Dosage: 150 MILLIGRAM, QD
     Route: 048
     Dates: start: 20230606

REACTIONS (7)
  - Malignant neoplasm progression [Unknown]
  - Nephrolithiasis [Unknown]
  - Blood potassium increased [Unknown]
  - Urinary retention [Unknown]
  - Urinary tract infection [Unknown]
  - Haemoglobin decreased [Unknown]
  - Blood creatinine increased [Recovering/Resolving]
